FAERS Safety Report 10024176 (Version 1)
Quarter: 2014Q1

REPORT INFORMATION
  Report Type: Spontaneous
  Country: US (occurrence: None)
  Receive Date: 20140127
  Receipt Date: 20140127
  Transmission Date: 20141002
  Serious: Yes (Life-Threatening, Hospitalization, Other)
  Sender: FDA-Public Use
  Company Number: ADR-2009-6530

PATIENT
  Sex: Female

DRUGS (3)
  1. LIORESAL [Suspect]
     Indication: MUSCLE SPASTICITY
     Route: 037
  2. BUPIVICAINE [Suspect]
  3. DILAUDID [Suspect]

REACTIONS (4)
  - Overdose [None]
  - Cardiac arrest [None]
  - Paralysis [None]
  - Device battery issue [None]
